FAERS Safety Report 6398720-5 (Version None)
Quarter: 2009Q4

REPORT INFORMATION
  Report Type: 
  Country: None (occurrence: None)
  Receive Date: 20091013
  Receipt Date: 20091013
  Transmission Date: 20100525
  Serious: No
  Sender: FDA-Public Use
  Company Number: IN-PFIZER INC-2009224449

PATIENT
  Age: 12 Year

DRUGS (2)
  1. MAGNEX [Suspect]
     Indication: WOUND INFECTION
     Dosage: 1.5 G, 2X/DAY
     Route: 042
     Dates: start: 20090603, end: 20090604
  2. VANCOMYCIN [Concomitant]
     Route: 042
     Dates: start: 20090603, end: 20090604

REACTIONS (1)
  - RASH [None]
